FAERS Safety Report 17978290 (Version 4)
Quarter: 2023Q4

REPORT INFORMATION
  Report Type: Report from Study
  Country: US (occurrence: US)
  Receive Date: 20200703
  Receipt Date: 20231218
  Transmission Date: 20240110
  Serious: Yes (Hospitalization, Other)
  Sender: FDA-Public Use
  Company Number: US-ACADIA PHARMACEUTICALS INC.-ACA-2020-PIM-002123

PATIENT
  Age: 56 Year
  Sex: Female

DRUGS (26)
  1. NUPLAZID [Suspect]
     Active Substance: PIMAVANSERIN TARTRATE
     Indication: Parkinson^s disease psychosis
     Dosage: 10 MILLIGRAM, QD
     Route: 048
     Dates: start: 20200506
  2. NUPLAZID [Suspect]
     Active Substance: PIMAVANSERIN TARTRATE
     Indication: Hallucination
     Dosage: 10 MILLIGRAM,QD
     Route: 048
  3. NUPLAZID [Suspect]
     Active Substance: PIMAVANSERIN TARTRATE
     Indication: Delusion
  4. CARBIDOPA\LEVODOPA [Concomitant]
     Active Substance: CARBIDOPA\LEVODOPA
     Indication: Product used for unknown indication
  5. PRIMIDONE [Concomitant]
     Active Substance: PRIMIDONE
     Indication: Product used for unknown indication
  6. LISINOPRIL [Concomitant]
     Active Substance: LISINOPRIL
  7. HYDROXYZINE [Concomitant]
     Active Substance: HYDROXYZINE HYDROCHLORIDE
  8. PRAVASTATIN [Concomitant]
     Active Substance: PRAVASTATIN
  9. CITRUCEL [Concomitant]
     Active Substance: METHYLCELLULOSE (4000 CPS)\METHYLCELLULOSE (4000 MPA.S)
  10. TEMAZEPAM [Concomitant]
     Active Substance: TEMAZEPAM
  11. TYLENOL [Concomitant]
     Active Substance: ACETAMINOPHEN
  12. BISACODYL [Concomitant]
     Active Substance: BISACODYL
  13. GABAPENTIN [Concomitant]
     Active Substance: GABAPENTIN
  14. TRAZODONE [Concomitant]
     Active Substance: TRAZODONE HYDROCHLORIDE
  15. LAMOTRIGINE [Concomitant]
     Active Substance: LAMOTRIGINE
  16. MIRALAX [Concomitant]
     Active Substance: POLYETHYLENE GLYCOL 3350
  17. OXYBUTYNIN [Concomitant]
     Active Substance: OXYBUTYNIN
  18. VITAMIN C [Concomitant]
     Active Substance: ASCORBIC ACID
  19. RIVASTIGMINE [Concomitant]
     Active Substance: RIVASTIGMINE
  20. VITAMIN E [Concomitant]
     Active Substance: .ALPHA.-TOCOPHEROL
  21. OXYMETAZOLINE [Concomitant]
     Active Substance: OXYMETAZOLINE
  22. DICLOFENAC [Concomitant]
     Active Substance: DICLOFENAC
  23. ONDANSETRON [Concomitant]
     Active Substance: ONDANSETRON
  24. SUCRALFATE [Concomitant]
     Active Substance: SUCRALFATE
  25. ZENPEP [Concomitant]
     Active Substance: PANCRELIPASE AMYLASE\PANCRELIPASE LIPASE\PANCRELIPASE PROTEASE
  26. LORATADINE [Concomitant]
     Active Substance: LORATADINE

REACTIONS (6)
  - Pyrexia [Unknown]
  - Headache [Unknown]
  - Impaired gastric emptying [Recovering/Resolving]
  - Confusional state [Unknown]
  - Adverse drug reaction [Not Recovered/Not Resolved]
  - Hallucinations, mixed [Unknown]

NARRATIVE: CASE EVENT DATE: 20200601
